FAERS Safety Report 4874429-1 (Version None)
Quarter: 2005Q4

REPORT INFORMATION
  Report Type: 
  Country: None (occurrence: None)
  Receive Date: 20051201
  Receipt Date: 20050810
  Transmission Date: 20060501
  Serious: No
  Sender: FDA-Public Use
  Company Number: 2005PV001059

PATIENT
  Age: 45 Year
  Sex: Female
  Weight: 58.0604 kg

DRUGS (14)
  1. BYETTA [Suspect]
     Indication: DIABETES MELLITUS NON-INSULIN-DEPENDENT
     Dosage: 5 MCG; BID; SC
     Route: 058
     Dates: start: 20050802
  2. PREDNISONE [Concomitant]
  3. TOPROL [Concomitant]
  4. METHOTREXATE [Concomitant]
  5. PREVACID [Concomitant]
  6. FOLIC ACID [Concomitant]
  7. ACTIVELLA [Concomitant]
  8. WELLBUTRIN SR [Concomitant]
  9. KLONOPIN [Concomitant]
  10. COMPAZINE [Concomitant]
  11. BENTYL [Concomitant]
  12. CHROMIUM [Concomitant]
  13. CINNAMON [Concomitant]
  14. ALLEGRA [Concomitant]

REACTIONS (8)
  - BLOOD GLUCOSE DECREASED [None]
  - DECREASED APPETITE [None]
  - DIZZINESS [None]
  - FATIGUE [None]
  - FOOD AVERSION [None]
  - MALAISE [None]
  - NAUSEA [None]
  - NERVOUSNESS [None]
